FAERS Safety Report 20507064 (Version 1)
Quarter: 2022Q1

REPORT INFORMATION
  Report Type: Report from Study
  Country: US (occurrence: US)
  Receive Date: 20220223
  Receipt Date: 20220223
  Transmission Date: 20220423
  Serious: Yes (Hospitalization)
  Sender: FDA-Public Use
  Company Number: US-BAYER-2022A024047

PATIENT
  Age: 46 Year
  Sex: Female

DRUGS (2)
  1. STIVARGA [Suspect]
     Active Substance: REGORAFENIB
     Dosage: DAILY DOSE 80 MG
     Route: 048
     Dates: start: 202201, end: 2022
  2. STIVARGA [Suspect]
     Active Substance: REGORAFENIB
     Dosage: DAILY DOSE 80 MG
     Route: 048
     Dates: start: 20220209

REACTIONS (6)
  - Intestinal obstruction [Recovered/Resolved]
  - Renal failure [Unknown]
  - Dry skin [Unknown]
  - Asthenia [Unknown]
  - Impaired self-care [Unknown]
  - Off label use [None]

NARRATIVE: CASE EVENT DATE: 20220101
